FAERS Safety Report 10081939 (Version 3)
Quarter: 2014Q2

REPORT INFORMATION
  Report Type: Spontaneous
  Country: JP (occurrence: JP)
  Receive Date: 20140416
  Receipt Date: 20140519
  Transmission Date: 20141212
  Serious: Yes (Other)
  Sender: FDA-Public Use
  Company Number: JP-GLAXOSMITHKLINE-B0985555A

PATIENT
  Age: 91 Year
  Sex: Female

DRUGS (3)
  1. VALTREX [Suspect]
     Indication: HERPES ZOSTER
     Dosage: 1000MG TWICE PER DAY
     Route: 048
     Dates: start: 20140408, end: 20140410
  2. VALTREX [Suspect]
     Indication: HERPES ZOSTER
     Dosage: 1000MG PER DAY
     Route: 048
     Dates: start: 20140411, end: 20140414
  3. SEROQUEL [Concomitant]
     Indication: DEMENTIA
     Dosage: 25MG THREE TIMES PER DAY
     Route: 048
     Dates: start: 20140408, end: 20140414

REACTIONS (5)
  - Altered state of consciousness [Recovered/Resolved]
  - Delirium [Unknown]
  - Cerebral infarction [Unknown]
  - Lacunar infarction [Unknown]
  - Wrong technique in drug usage process [Unknown]
